FAERS Safety Report 23039471 (Version 2)
Quarter: 2023Q4

REPORT INFORMATION
  Report Type: Spontaneous
  Country: CA (occurrence: CA)
  Receive Date: 20231006
  Receipt Date: 20231124
  Transmission Date: 20240109
  Serious: Yes (Other)
  Sender: FDA-Public Use
  Company Number: CA-PFIZER INC-202300312738

PATIENT
  Age: 38 Year
  Sex: Female

DRUGS (9)
  1. RITUXIMAB [Suspect]
     Active Substance: RITUXIMAB
     Indication: Granulomatosis with polyangiitis
     Dosage: UNK
     Dates: start: 202210
  2. RITUXIMAB [Suspect]
     Active Substance: RITUXIMAB
     Dosage: 500 MG
     Dates: start: 202304
  3. HYDROXYCHLOROQUINE [Concomitant]
     Active Substance: HYDROXYCHLOROQUINE
     Dosage: 300 MG, 1X/DAY
  4. MYCOPHENOLATE MOFETIL [Concomitant]
     Active Substance: MYCOPHENOLATE MOFETIL
     Dosage: 1.5 MG, 2X/DAY (INCREASED)
     Dates: start: 2023
  5. OZEMPIC [Concomitant]
     Active Substance: SEMAGLUTIDE
     Dosage: UNK
  6. PREDNISONE [Concomitant]
     Active Substance: PREDNISONE
     Dosage: 20 MG, DAILY
  7. PREDNISONE [Concomitant]
     Active Substance: PREDNISONE
     Dosage: 17.5 MG, TEMPORARILY WENT DOWN ON HER PREDNISONE TO 17.5 MG (FROM 20 MG)
  8. PREDNISONE [Concomitant]
     Active Substance: PREDNISONE
     Dosage: 20 MG, DAILY
  9. RYBELSUS [Concomitant]
     Active Substance: SEMAGLUTIDE
     Dosage: UNK

REACTIONS (5)
  - Glaucoma [Unknown]
  - Cataract [Unknown]
  - Interstitial lung disease [Not Recovered/Not Resolved]
  - Sputum increased [Not Recovered/Not Resolved]
  - Fatigue [Not Recovered/Not Resolved]

NARRATIVE: CASE EVENT DATE: 20230101
